FAERS Safety Report 23787580 (Version 1)
Quarter: 2024Q2

REPORT INFORMATION
  Report Type: Spontaneous
  Country: IN (occurrence: IN)
  Receive Date: 20240426
  Receipt Date: 20240426
  Transmission Date: 20240716
  Serious: Yes (Hospitalization, Other)
  Sender: FDA-Public Use
  Company Number: IN-SPC-000428

PATIENT
  Sex: Female

DRUGS (1)
  1. METRONIDAZOLE [Suspect]
     Active Substance: METRONIDAZOLE
     Indication: Suicide attempt
     Dosage: 30 TABLETS OF 400 MG
     Route: 065

REACTIONS (3)
  - Encephalitis [Recovered/Resolved]
  - Overdose [Unknown]
  - Intentional product misuse [Unknown]
